FAERS Safety Report 6953075-X (Version None)
Quarter: 2010Q3

REPORT INFORMATION
  Report Type: 
  Country: None (occurrence: None)
  Receive Date: 20100829
  Receipt Date: 20100524
  Transmission Date: 20110219
  Serious: No
  Sender: FDA-Public Use
  Company Number: US-ABBOTT-10P-163-0647719-00

PATIENT
  Sex: Male
  Weight: 99.88 kg

DRUGS (9)
  1. NIASPAN [Suspect]
     Indication: BLOOD CHOLESTEROL INCREASED
     Route: 048
     Dates: start: 20100520
  2. WARFARIN SODIUM [Concomitant]
     Indication: FACTOR VIII DEFICIENCY
     Dosage: 10MG 6 DAYS PER WEEK, 5MG ONE DAY A WEEK
     Route: 048
  3. LIPITOR [Concomitant]
     Indication: BLOOD CHOLESTEROL INCREASED
     Route: 048
  4. ALTACE [Concomitant]
     Indication: HYPERTENSION
     Route: 048
  5. FLOMAX [Concomitant]
     Indication: BENIGN PROSTATIC HYPERPLASIA
  6. ASCORBIC ACID [Concomitant]
     Indication: VITAMIN SUPPLEMENTATION
     Route: 048
  7. ASPIRIN [Concomitant]
     Indication: PROPHYLAXIS
     Route: 048
  8. VITAMIN E [Concomitant]
     Indication: VITAMIN SUPPLEMENTATION
     Route: 048
  9. VITAMIN D [Concomitant]
     Indication: VITAMIN SUPPLEMENTATION
     Route: 048

REACTIONS (3)
  - ABDOMINAL DISCOMFORT [None]
  - DIZZINESS [None]
  - HEADACHE [None]
